FAERS Safety Report 9502826 (Version 1)
Quarter: 2013Q3

REPORT INFORMATION
  Report Type: Spontaneous
  Country: US (occurrence: US)
  Receive Date: 20130906
  Receipt Date: 20130906
  Transmission Date: 20140515
  Serious: Yes (Other)
  Sender: FDA-Public Use
  Company Number: US-JNJFOC-20130816732

PATIENT
  Sex: Male
  Weight: 69.85 kg

DRUGS (3)
  1. DITROPAN [Suspect]
     Indication: MICTURITION URGENCY
     Route: 065
     Dates: start: 2013, end: 2013
  2. DITROPAN [Suspect]
     Indication: MICTURITION URGENCY
     Route: 065
     Dates: start: 2013, end: 2013
  3. DITROPAN [Suspect]
     Indication: MICTURITION URGENCY
     Route: 065
     Dates: start: 2013, end: 2013

REACTIONS (4)
  - Urinary bladder atrophy [Unknown]
  - Ageusia [Unknown]
  - Urinary incontinence [Unknown]
  - Decreased appetite [Unknown]
